FAERS Safety Report 7540357-6 (Version None)
Quarter: 2011Q2

REPORT INFORMATION
  Report Type: 
  Country: None (occurrence: None)
  Receive Date: 20110603
  Receipt Date: 20110518
  Transmission Date: 20111010
  Serious: Yes (Life-Threatening, Hospitalization, Other)
  Sender: FDA-Public Use
  Company Number: 2011MA006066

PATIENT
  Age: 46 Year
  Sex: Female

DRUGS (5)
  1. PROPOFOL [Concomitant]
  2. CETIRIZINE HCL [Concomitant]
  3. MIDAZOLAM HCL [Concomitant]
  4. FENTANYL-100 [Concomitant]
  5. SERTRALINE HYDROCHLORIDE [Suspect]
     Indication: DEPRESSION
     Dosage: 50 MG; OD

REACTIONS (18)
  - OXYGEN SATURATION DECREASED [None]
  - AGGRESSION [None]
  - RESTLESSNESS [None]
  - CHILLS [None]
  - AGITATION [None]
  - ALANINE AMINOTRANSFERASE INCREASED [None]
  - BLOOD CREATINE PHOSPHOKINASE INCREASED [None]
  - CONFUSIONAL STATE [None]
  - HEART RATE INCREASED [None]
  - ASPARTATE AMINOTRANSFERASE INCREASED [None]
  - MUSCLE RIGIDITY [None]
  - HYPOXIA [None]
  - HYPERHIDROSIS [None]
  - SOMNOLENCE [None]
  - CLONUS [None]
  - BLOOD PH DECREASED [None]
  - RESPIRATORY ACIDOSIS [None]
  - HYPERREFLEXIA [None]
